FAERS Safety Report 14055867 (Version 1)
Quarter: 2017Q4

REPORT INFORMATION
  Report Type: Report from Study
  Country: CA (occurrence: CA)
  Receive Date: 20171006
  Receipt Date: 20171006
  Transmission Date: 20180321
  Serious: Yes (Other)
  Sender: FDA-Public Use
  Company Number: CA-JNJFOC-20170702059

PATIENT
  Sex: Male

DRUGS (1)
  1. IMBRUVICA [Suspect]
     Active Substance: IBRUTINIB
     Indication: WALDENSTROM^S MACROGLOBULINAEMIA
     Route: 048
     Dates: start: 201608

REACTIONS (5)
  - Vein rupture [Unknown]
  - Fluid retention [Unknown]
  - Cardiac disorder [Unknown]
  - Haemorrhage [Unknown]
  - Lung infection [Recovering/Resolving]
